FAERS Safety Report 20661713 (Version 3)
Quarter: 2022Q2

REPORT INFORMATION
  Report Type: Spontaneous
  Country: GB (occurrence: GB)
  Receive Date: 20220401
  Receipt Date: 20220525
  Transmission Date: 20220720
  Serious: Yes (Other)
  Sender: FDA-Public Use
  Company Number: None

PATIENT
  Sex: Female

DRUGS (26)
  1. IMATINIB [Suspect]
     Active Substance: IMATINIB
     Indication: Chronic myeloid leukaemia
     Dosage: 300 MG, QD
     Route: 065
     Dates: start: 20160620, end: 20180215
  2. ANAGRELIDE [Suspect]
     Active Substance: ANAGRELIDE
     Indication: Product used for unknown indication
     Dosage: 0.5 MG, QD
     Route: 065
     Dates: start: 20210624
  3. ASCIMINIB [Suspect]
     Active Substance: ASCIMINIB
     Indication: Product used for unknown indication
     Dosage: 40 MG, BID
     Route: 065
  4. BOSUTINIB [Suspect]
     Active Substance: BOSUTINIB
     Indication: Chronic myeloid leukaemia
     Dosage: 500 MG, QD
     Route: 065
     Dates: start: 20200305, end: 20200305
  5. BOSUTINIB [Suspect]
     Active Substance: BOSUTINIB
     Dosage: 300 MG, QD
     Route: 065
     Dates: start: 20180423
  6. BOSUTINIB [Suspect]
     Active Substance: BOSUTINIB
     Dosage: 200 MG, QD
     Route: 065
     Dates: start: 20180329
  7. BOSUTINIB [Suspect]
     Active Substance: BOSUTINIB
     Dosage: 400 MG, QD
     Route: 065
     Dates: start: 20200224
  8. DASATINIB [Suspect]
     Active Substance: DASATINIB
     Indication: Chronic myeloid leukaemia
     Dosage: 70 MG, QD
     Route: 065
     Dates: start: 20200806
  9. DASATINIB [Suspect]
     Active Substance: DASATINIB
     Dosage: 100 MG, QD
     Route: 065
     Dates: start: 20201016, end: 20201116
  10. DASATINIB [Suspect]
     Active Substance: DASATINIB
     Dosage: 50 MG, QD
     Route: 065
     Dates: start: 20200715
  11. HYDROXYUREA [Suspect]
     Active Substance: HYDROXYUREA
     Indication: Chronic myeloid leukaemia
     Dosage: UNK (1G OD 5/7 AND 0.5G OD 2/7)
     Route: 065
     Dates: start: 20210322, end: 20211116
  12. HYDROXYUREA [Suspect]
     Active Substance: HYDROXYUREA
     Dosage: 0.5 G, QD
     Route: 065
     Dates: start: 20210311
  13. HYDROXYUREA [Suspect]
     Active Substance: HYDROXYUREA
     Route: 065
  14. HYDROXYUREA [Suspect]
     Active Substance: HYDROXYUREA
     Route: 065
  15. HYDROXYUREA [Suspect]
     Active Substance: HYDROXYUREA
     Route: 065
     Dates: start: 20210527
  16. PONATINIB [Suspect]
     Active Substance: PONATINIB
     Indication: Product used for unknown indication
     Dosage: 45 MG, QD
     Route: 065
     Dates: start: 20210225
  17. PONATINIB [Suspect]
     Active Substance: PONATINIB
     Dosage: 30 MG, QD
     Route: 065
     Dates: start: 20210204
  18. PONATINIB [Suspect]
     Active Substance: PONATINIB
     Dosage: 15 MG, QD
     Route: 065
     Dates: start: 202201
  19. PONATINIB [Suspect]
     Active Substance: PONATINIB
     Dosage: 45 MG, QD
     Route: 065
     Dates: start: 20210322, end: 20210506
  20. PONATINIB [Suspect]
     Active Substance: PONATINIB
     Dosage: 30 MG, QD
     Route: 065
     Dates: start: 20210624
  21. PONATINIB [Suspect]
     Active Substance: PONATINIB
     Dosage: 45 MG, QD
     Route: 065
     Dates: start: 20210311
  22. PONATINIB [Suspect]
     Active Substance: PONATINIB
     Dosage: 45 MG, QD
     Route: 065
     Dates: start: 20210118
  23. PONATINIB [Suspect]
     Active Substance: PONATINIB
     Route: 065
     Dates: start: 20210506
  24. PONATINIB [Suspect]
     Active Substance: PONATINIB
     Route: 065
     Dates: start: 20220103
  25. PONATINIB [Suspect]
     Active Substance: PONATINIB
     Route: 065
     Dates: start: 20210322, end: 20210506
  26. ASPIRIN [Suspect]
     Active Substance: ASPIRIN
     Indication: Chronic myeloid leukaemia
     Route: 065
     Dates: start: 20210118

REACTIONS (4)
  - Drug resistance [Not Recovered/Not Resolved]
  - Fatigue [Not Recovered/Not Resolved]
  - Weight increased [Not Recovered/Not Resolved]
  - Drug intolerance [Not Recovered/Not Resolved]
